FAERS Safety Report 26112671 (Version 1)
Quarter: 2025Q4

REPORT INFORMATION
  Report Type: Report from Study
  Country: US (occurrence: US)
  Receive Date: 20251202
  Receipt Date: 20251202
  Transmission Date: 20260118
  Serious: Yes (Other)
  Sender: SUNOVION
  Company Number: US-SUMITOMO PHARMA SWITZERLAND GMBH-2025SPA014932

PATIENT
  Age: 72 Year
  Sex: Male

DRUGS (3)
  1. ORGOVYX [Suspect]
     Active Substance: RELUGOLIX
     Indication: Prostate cancer
     Dosage: 360 MG, SINGLE
     Route: 048
     Dates: start: 20251106, end: 20251106
  2. ORGOVYX [Suspect]
     Active Substance: RELUGOLIX
     Dosage: 120 MG, QD
     Route: 048
     Dates: start: 20251107
  3. NUBEQA [Concomitant]
     Active Substance: DAROLUTAMIDE

REACTIONS (7)
  - Diabetes mellitus [Unknown]
  - Nervous system disorder [Unknown]
  - Anger [Unknown]
  - Hot flush [Unknown]
  - Pain in extremity [Unknown]
  - Pain [Unknown]
  - Hypokinesia [Unknown]
